FAERS Safety Report 12689440 (Version 1)
Quarter: 2016Q3

REPORT INFORMATION
  Report Type: Spontaneous
  Country: US (occurrence: None)
  Receive Date: 20160825
  Receipt Date: 20160825
  Transmission Date: 20161109
  Serious: No
  Sender: FDA-Public Use
  Company Number: None

PATIENT
  Age: 9 Month
  Sex: Female
  Weight: 8.62 kg

DRUGS (3)
  1. INFANTS TYLENOL [Concomitant]
     Active Substance: ACETAMINOPHEN
  2. BABY TEETHING (HYLAND HOMEOPATHIC) [Suspect]
     Active Substance: HOMEOPATHICS
     Indication: TEETHING
     Dosage: 2 TABLET(S) AS NEEDED TAKEN BY MOUTH
     Route: 048
     Dates: start: 20160815, end: 20160823
  3. INFANT MOTRIN CONCENTRATED DROPS [Concomitant]

REACTIONS (2)
  - Posture abnormal [None]
  - Thirst [None]

NARRATIVE: CASE EVENT DATE: 20160823
